FAERS Safety Report 9639031 (Version 1)
Quarter: 2013Q4

REPORT INFORMATION
  Report Type: Report from Study
  Country: US (occurrence: US)
  Receive Date: 20131022
  Receipt Date: 20131022
  Transmission Date: 20140711
  Serious: No
  Sender: FDA-Public Use
  Company Number: US-ABBVIE-12P-163-0992665-00

PATIENT
  Age: 23 Year
  Sex: Female
  Weight: 49.94 kg

DRUGS (6)
  1. LUPRON DEPOT [Suspect]
     Indication: ENDOMETRIOSIS
     Dates: start: 201205, end: 201210
  2. OMEPRAZOLE [Concomitant]
     Indication: GASTROOESOPHAGEAL REFLUX DISEASE
  3. SPIRONOLACTONE [Concomitant]
     Indication: POLYCYSTIC OVARIES
  4. AMITRIPTYLINE [Concomitant]
     Indication: MIGRAINE
  5. FLEXERIL [Concomitant]
     Indication: MIGRAINE
  6. VITAMINS [Concomitant]
     Indication: PRODUCT USED FOR UNKNOWN INDICATION

REACTIONS (1)
  - Alopecia [Not Recovered/Not Resolved]
